APPROVED DRUG PRODUCT: DOXEPIN HYDROCHLORIDE
Active Ingredient: DOXEPIN HYDROCHLORIDE
Strength: 5%
Dosage Form/Route: CREAM;TOPICAL
Application: A212357 | Product #001 | TE Code: AB
Applicant: AMNEAL PHARMACEUTICALS LLC
Approved: Aug 16, 2023 | RLD: No | RS: No | Type: RX